FAERS Safety Report 10499227 (Version 1)
Quarter: 2014Q4

REPORT INFORMATION
  Report Type: Spontaneous
  Country: IT (occurrence: IT)
  Receive Date: 20141006
  Receipt Date: 20141006
  Transmission Date: 20150528
  Serious: Yes (Hospitalization)
  Sender: FDA-Public Use
  Company Number: IT-FRI-1000071107

PATIENT
  Age: 29 Year
  Sex: Female

DRUGS (1)
  1. FOSFOMYCIN [Suspect]
     Active Substance: FOSFOMYCIN
     Indication: DYSURIA
     Dosage: 1 DF
     Route: 048
     Dates: start: 20140206, end: 20140206

REACTIONS (4)
  - Rash generalised [Recovered/Resolved]
  - Adverse drug reaction [Recovered/Resolved]
  - Periorbital oedema [Recovered/Resolved]
  - Off label use [Recovered/Resolved]

NARRATIVE: CASE EVENT DATE: 20140206
